FAERS Safety Report 7804981-5 (Version None)
Quarter: 2011Q4

REPORT INFORMATION
  Report Type: 
  Country: None (occurrence: None)
  Receive Date: 20111010
  Receipt Date: 20110926
  Transmission Date: 20120403
  Serious: Yes (Other)
  Sender: FDA-Public Use
  Company Number: US-JNJFOC-20110912302

PATIENT
  Age: 86 Year
  Sex: Male

DRUGS (6)
  1. ZYRTEC [Suspect]
     Dosage: REDUCED TO 1/2 A TABLET PER DAY
     Route: 048
  2. ZYRTEC [Suspect]
     Indication: PRURITUS
     Route: 048
  3. ZYRTEC [Suspect]
     Route: 048
  4. WARFARIN SODIUM [Concomitant]
     Indication: THROMBOSIS
     Route: 065
  5. ZYRTEC [Suspect]
     Dosage: REDUCED TO 1/2 A TABLET PER DAY
     Route: 048
  6. HYPERTENSION MEDICATIONS [Concomitant]
     Indication: HYPERTENSION
     Route: 065

REACTIONS (3)
  - ANXIETY [None]
  - DEPENDENCE [None]
  - INSOMNIA [None]
